FAERS Safety Report 17806295 (Version 1)
Quarter: 2020Q2

REPORT INFORMATION
  Report Type: Spontaneous
  Country: US (occurrence: US)
  Receive Date: 20200519
  Receipt Date: 20200519
  Transmission Date: 20200714
  Serious: Yes (Hospitalization)
  Sender: FDA-Public Use
  Company Number: None

PATIENT
  Age: 59 Year
  Sex: Female

DRUGS (19)
  1. CHOLECALCIFEROL (VITAMIN D3) [Concomitant]
  2. CYANOCOBALAMIN (VITAMIN B-12) [Concomitant]
  3. ALBUTEROL HFA INHALER [Concomitant]
     Active Substance: ALBUTEROL
  4. BUPRENORPHINE-NALOXON (SUBOXONE) [Concomitant]
  5. METOPROLOL SUCCINATE. [Concomitant]
     Active Substance: METOPROLOL SUCCINATE
  6. NIFEDIPINE (ADALAT CC) [Concomitant]
  7. PANTOPRAZOLE (PROTONIX) 40 [Concomitant]
  8. COREG [Concomitant]
     Active Substance: CARVEDILOL
  9. DICYCLOMINE (BENTYL) [Concomitant]
  10. LISINOPRIL  (PRINVIL, ZESTRIL) [Concomitant]
  11. FLUTICASONE (FLOVENT HFA) [Concomitant]
  12. ATOVAQUONE (MEFRON) [Concomitant]
  13. BUDESNOIDE (ENTOCORT EC) [Concomitant]
  14. DIPHENHYDRAMINE (BENADRYL) [Concomitant]
  15. MAVYRET [Suspect]
     Active Substance: GLECAPREVIR\PIBRENTASVIR
     Dosage: 3 (100MG/40MG PER TABLET 1X /DAY ORAL
     Route: 048
     Dates: start: 20180814, end: 20181106
  16. AZATHIOPRINE (IMURAN) [Concomitant]
  17. TYLENOL [Concomitant]
     Active Substance: ACETAMINOPHEN
  18. PROMETHAZINE (PHENERGAN) [Concomitant]
  19. NALOXONE (NARCAN) [Concomitant]

REACTIONS (3)
  - Fluid overload [None]
  - Hypertension [None]
  - Dialysis [None]

NARRATIVE: CASE EVENT DATE: 20180918
